FAERS Safety Report 20367364 (Version 1)
Quarter: 2022Q1

REPORT INFORMATION
  Report Type: Spontaneous
  Country: US (occurrence: US)
  Receive Date: 20220124
  Receipt Date: 20220124
  Transmission Date: 20220424
  Serious: No
  Sender: FDA-Public Use
  Company Number: US-SA-SAC20220119001173

PATIENT
  Sex: Female

DRUGS (1)
  1. DUPIXENT [Suspect]
     Active Substance: DUPILUMAB
     Indication: Dermatitis allergic
     Dosage: 300 MG/ML, QOW
     Route: 058
     Dates: start: 20210623

REACTIONS (3)
  - Headache [Unknown]
  - Nasopharyngitis [Unknown]
  - Product use in unapproved indication [Unknown]
